FAERS Safety Report 4537689-2 (Version None)
Quarter: 2005Q1

REPORT INFORMATION
  Report Type: 
  Country: None (occurrence: None)
  Receive Date: 20041216
  Receipt Date: 20040210
  Transmission Date: 20050727
  Serious: Yes (Other)
  Sender: FDA-Public Use
  Company Number: HQWYE932911FEB04

PATIENT
  Sex: Male

DRUGS (2)
  1. EFFEXOR XR [Suspect]
     Dosage: SEE IMAGE
     Route: 048
     Dates: start: 20030101, end: 20030101
  2. EFFEXOR XR [Suspect]
     Dosage: SEE IMAGE
     Route: 048

REACTIONS (14)
  - AGGRESSION [None]
  - CONDITION AGGRAVATED [None]
  - DRUG WITHDRAWAL SYNDROME [None]
  - FEELING JITTERY [None]
  - HYPERHIDROSIS [None]
  - INSOMNIA [None]
  - IRRITABILITY [None]
  - MANIA [None]
  - NERVOUSNESS [None]
  - PARAESTHESIA [None]
  - PERSONALITY DISORDER [None]
  - TINNITUS [None]
  - TREMOR [None]
  - VOMITING [None]
